FAERS Safety Report 18247113 (Version 3)
Quarter: 2021Q2

REPORT INFORMATION
  Report Type: Spontaneous
  Country: US (occurrence: US)
  Receive Date: 20200909
  Receipt Date: 20210506
  Transmission Date: 20210717
  Serious: Yes (Other)
  Sender: FDA-Public Use
  Company Number: US-ASTRAZENECA-2019SE11541

PATIENT
  Age: 16884 Day
  Sex: Female
  Weight: 108 kg

DRUGS (44)
  1. NEXIUM [Suspect]
     Active Substance: ESOMEPRAZOLE MAGNESIUM
     Indication: GASTRIC ULCER
     Route: 048
     Dates: start: 2008, end: 2016
  2. SULFAMETHOXAZOLE/TRIMETHOPRIM [Concomitant]
     Active Substance: SULFAMETHOXAZOLE\TRIMETHOPRIM
     Dosage: 800/160MG TAB
     Dates: start: 20150809
  3. BUPROPION. [Concomitant]
     Active Substance: BUPROPION
  4. AMOXICILLIN. [Concomitant]
     Active Substance: AMOXICILLIN
  5. FLUOXETINE [Concomitant]
     Active Substance: FLUOXETINE HYDROCHLORIDE
     Dates: start: 20151127
  6. BIOTIN [Concomitant]
     Active Substance: BIOTIN
  7. POTASSIUM CHLORIDE. [Concomitant]
     Active Substance: POTASSIUM CHLORIDE
  8. ALPRAZOLAM. [Concomitant]
     Active Substance: ALPRAZOLAM
  9. FLECTOR [Concomitant]
     Active Substance: DICLOFENAC EPOLAMINE
  10. NEXIUM [Suspect]
     Active Substance: ESOMEPRAZOLE MAGNESIUM
     Indication: GASTROOESOPHAGEAL REFLUX DISEASE
     Route: 048
     Dates: start: 200801, end: 201612
  11. OMEPRAZOLE. [Suspect]
     Active Substance: OMEPRAZOLE
     Indication: GASTROOESOPHAGEAL REFLUX DISEASE
     Route: 065
  12. OMEPRAZOLE. [Suspect]
     Active Substance: OMEPRAZOLE
     Indication: GASTRIC ULCER
     Route: 065
  13. DEXILANT [Suspect]
     Active Substance: DEXLANSOPRAZOLE
     Indication: GASTRIC ULCER
     Route: 065
     Dates: start: 200801, end: 201612
  14. LISINOPRIL. [Concomitant]
     Active Substance: LISINOPRIL
     Dosage: 10 MG TAB
     Dates: start: 20150803
  15. CARISOPRODOL. [Concomitant]
     Active Substance: CARISOPRODOL
  16. METFORMIN [Concomitant]
     Active Substance: METFORMIN HYDROCHLORIDE
  17. VOLTAREN [Concomitant]
     Active Substance: DICLOFENAC SODIUM
  18. OXYBUTYNIN. [Concomitant]
     Active Substance: OXYBUTYNIN CHLORIDE
  19. ARPIPRAZOLE [Concomitant]
     Active Substance: ARIPIPRAZOLE
  20. NEXIUM [Suspect]
     Active Substance: ESOMEPRAZOLE MAGNESIUM
     Indication: GASTRIC ULCER
     Route: 065
     Dates: start: 2015
  21. DEXILANT [Suspect]
     Active Substance: DEXLANSOPRAZOLE
     Indication: GASTROOESOPHAGEAL REFLUX DISEASE
     Route: 065
     Dates: start: 200801, end: 201612
  22. FLUOXETINE [Concomitant]
     Active Substance: FLUOXETINE HYDROCHLORIDE
     Dates: start: 20160219
  23. ESTRADIOL. [Concomitant]
     Active Substance: ESTRADIOL
  24. PROMETHZINE [Concomitant]
  25. NEXIUM [Suspect]
     Active Substance: ESOMEPRAZOLE MAGNESIUM
     Indication: GASTROOESOPHAGEAL REFLUX DISEASE
     Route: 065
     Dates: start: 2015
  26. VITAMIN D [Concomitant]
     Active Substance: VITAMIN D NOS
  27. TOPIRAMATE. [Concomitant]
     Active Substance: TOPIRAMATE
  28. CEPHALEXIN. [Concomitant]
     Active Substance: CEPHALEXIN
  29. CITALOPRAM [Concomitant]
     Active Substance: CITALOPRAM HYDROBROMIDE
  30. BACLOFEN. [Concomitant]
     Active Substance: BACLOFEN
  31. NEXIUM [Suspect]
     Active Substance: ESOMEPRAZOLE MAGNESIUM
     Indication: GASTRIC ULCER
     Route: 048
     Dates: start: 200801, end: 201612
  32. FUROSEMIDE. [Concomitant]
     Active Substance: FUROSEMIDE
     Dosage: 20MG TAB
     Dates: start: 20150803
  33. FUROSEMIDE. [Concomitant]
     Active Substance: FUROSEMIDE
     Dosage: 20MG TAB
     Dates: start: 20160219
  34. FLUTICASONE. [Concomitant]
     Active Substance: FLUTICASONE
  35. MORPHINE [Concomitant]
     Active Substance: MORPHINE
  36. NEXIUM [Suspect]
     Active Substance: ESOMEPRAZOLE MAGNESIUM
     Indication: GASTROOESOPHAGEAL REFLUX DISEASE
     Route: 048
     Dates: start: 2008, end: 2016
  37. DEXILANT [Suspect]
     Active Substance: DEXLANSOPRAZOLE
     Indication: GASTROOESOPHAGEAL REFLUX DISEASE
     Route: 065
     Dates: start: 2008, end: 2016
  38. DEXILANT [Suspect]
     Active Substance: DEXLANSOPRAZOLE
     Indication: GASTRIC ULCER
     Route: 065
     Dates: start: 2008, end: 2016
  39. FUROSEMIDE. [Concomitant]
     Active Substance: FUROSEMIDE
     Dosage: 20MG TAB
     Dates: start: 20160519
  40. FLUOXETINE [Concomitant]
     Active Substance: FLUOXETINE HYDROCHLORIDE
     Dates: start: 20160222
  41. SIMVASTATIN. [Concomitant]
     Active Substance: SIMVASTATIN
     Dosage: 40 MG TAB
     Dates: start: 20151102
  42. LANTUS [Concomitant]
     Active Substance: INSULIN GLARGINE
  43. DIAZEPAM. [Concomitant]
     Active Substance: DIAZEPAM
  44. METACLOPRAMIDE [Concomitant]
     Active Substance: METOCLOPRAMIDE

REACTIONS (5)
  - Renal failure [Unknown]
  - Acute kidney injury [Not Recovered/Not Resolved]
  - Gastrooesophageal reflux disease [Unknown]
  - Gastric ulcer [Unknown]
  - Chronic kidney disease [Unknown]

NARRATIVE: CASE EVENT DATE: 20160622
